FAERS Safety Report 4920115-9 (Version None)
Quarter: 2006Q1

REPORT INFORMATION
  Report Type: 
  Country: None (occurrence: None)
  Receive Date: 20060216
  Receipt Date: 20060202
  Transmission Date: 20060701
  Serious: Yes (Hospitalization)
  Sender: FDA-Public Use
  Company Number: SUSI-2006-00154

PATIENT
  Age: 39 Year
  Sex: Female

DRUGS (3)
  1. PENTASA [Suspect]
     Indication: COLITIS ULCERATIVE
     Dosage: ORAL
     Route: 048
     Dates: end: 20050901
  2. SUCRALFATE [Concomitant]
  3. CALCHIEW-D3 (COLECALCIFEROL) [Concomitant]

REACTIONS (2)
  - ANAEMIA [None]
  - SYSTEMIC LUPUS ERYTHEMATOSUS [None]
